FAERS Safety Report 4601973-4 (Version None)
Quarter: 2005Q2

REPORT INFORMATION
  Report Type: 
  Country: None (occurrence: None)
  Receive Date: 20050215
  Receipt Date: 20041025
  Transmission Date: 20051028
  Serious: Yes (Death)
  Sender: FDA-Public Use
  Company Number: 384490

PATIENT
  Age: 54 Year
  Sex: Male
  Weight: 81.2 kg

DRUGS (2)
  1. PEGASYS [Suspect]
     Indication: HEPATITIS C
     Dosage: 180 MCG/ML 1 PER WEEK SUBCUTANEOUS
     Route: 058
     Dates: start: 20040830
  2. COPEGUS [Suspect]
     Indication: DRUG USE FOR UNKNOWN INDICATION
     Dosage: 1000 MG DAILY ORAL
     Route: 048
     Dates: start: 20040830

REACTIONS (3)
  - DEATH [None]
  - DIZZINESS [None]
  - FALL [None]
